FAERS Safety Report 5345058-0 (Version None)
Quarter: 2007Q2

REPORT INFORMATION
  Report Type: 
  Country: None (occurrence: None)
  Receive Date: 20070426
  Receipt Date: 20060726
  Transmission Date: 20071010
  Serious: Yes (Hospitalization)
  Sender: FDA-Public Use
  Company Number: CIP06001717

PATIENT
  Sex: Female

DRUGS (5)
  1. MACROBID [Suspect]
     Indication: PROPHYLAXIS
     Dosage: 100 MG DAILY, ORAL
     Route: 048
     Dates: start: 20020401, end: 20050701
  2. DETROL [Concomitant]
  3. ULTRAM [Concomitant]
  4. ESTRATEST [Concomitant]
  5. CELEBREX [Concomitant]

REACTIONS (4)
  - DYSPNOEA [None]
  - LUNG INFILTRATION [None]
  - PULMONARY FIBROSIS [None]
  - PULMONARY OEDEMA [None]
